FAERS Safety Report 4734191-X (Version None)
Quarter: 2005Q3

REPORT INFORMATION
  Report Type: 
  Country: None (occurrence: None)
  Receive Date: 20050729
  Receipt Date: 20050708
  Transmission Date: 20060218
  Serious: Yes (Hospitalization, Other)
  Sender: FDA-Public Use
  Company Number: USA0507102314

PATIENT
  Age: 71 Year
  Sex: Female

DRUGS (4)
  1. FORTEO [Suspect]
     Indication: OSTEOPOROSIS
     Dates: start: 20041001, end: 20050301
  2. CITRACAL (CALCIUM CITRATE) [Concomitant]
  3. ENBREL [Concomitant]
  4. PREDNISONE (PREDNISON [Concomitant]

REACTIONS (5)
  - ASTHENIA [None]
  - DYSSTASIA [None]
  - HYPERCALCAEMIA [None]
  - RESPIRATORY TRACT INFECTION [None]
  - THINKING ABNORMAL [None]
